FAERS Safety Report 14106143 (Version 1)
Quarter: 2017Q4

REPORT INFORMATION
  Report Type: Spontaneous
  Country: FR (occurrence: FR)
  Receive Date: 20171019
  Receipt Date: 20171019
  Transmission Date: 20180321
  Serious: Yes (Other)
  Sender: FDA-Public Use
  Company Number: FR-MERCK KGAA-2030659

PATIENT
  Age: 70 Year
  Sex: Female

DRUGS (3)
  1. NOVOTHYROX [Suspect]
     Active Substance: LEVOTHYROXINE SODIUM
     Indication: THYROIDECTOMY
     Route: 048
     Dates: end: 20170917
  2. NOCTAMIDE [Concomitant]
     Active Substance: LORMETAZEPAM
     Route: 048
  3. THERALENE [Concomitant]
     Active Substance: TRIMEPRAZINE

REACTIONS (4)
  - Insomnia [Recovered/Resolved]
  - Blood thyroid stimulating hormone increased [Unknown]
  - Depression [Recovered/Resolved]
  - Myalgia [Recovered/Resolved]

NARRATIVE: CASE EVENT DATE: 201707
